FAERS Safety Report 4282217-2 (Version None)
Quarter: 2004Q1

REPORT INFORMATION
  Report Type: 
  Country: None (occurrence: None)
  Receive Date: 20040130
  Receipt Date: 20040116
  Transmission Date: 20041129
  Serious: Yes (Death)
  Sender: FDA-Public Use
  Company Number: FR-GLAXOSMITHKLINE-B0320192A

PATIENT

DRUGS (2)
  1. DEROXAT [Suspect]
     Indication: DEPRESSION
     Dosage: 10MG PER DAY
  2. LEXOMIL [Suspect]
     Indication: DEPRESSION
     Dosage: .5UNIT PER DAY

REACTIONS (2)
  - DRUG EXPOSURE DURING PREGNANCY [None]
  - HEART DISEASE CONGENITAL [None]
